FAERS Safety Report 10509468 (Version 6)
Quarter: 2020Q3

REPORT INFORMATION
  Report Type: Report from Study
  Country: KR (occurrence: KR)
  Receive Date: 20141009
  Receipt Date: 20150311
  Transmission Date: 20201104
  Serious: Yes (Hospitalization, Other)
  Sender: FDA-Public Use
  Company Number: PHHO2014KR007286

PATIENT
  Age: 51 Year
  Sex: Female
  Weight: 57 kg

DRUGS (174)
  1. PASIREOTIDE. [Suspect]
     Active Substance: PASIREOTIDE
     Indication: PITUITARY-DEPENDENT CUSHING^S SYNDROME
     Dosage: 0.9 MG, BID
     Route: 058
     Dates: start: 20140414, end: 20140515
  2. POTASSIUM PHOSPHATE MONOBASIC [Concomitant]
     Active Substance: POTASSIUM PHOSPHATE, MONOBASIC
     Dosage: 20 ML, QD
     Route: 042
     Dates: start: 20140525, end: 20140525
  3. LEVETIRACETAM. [Concomitant]
     Active Substance: LEVETIRACETAM
     Dosage: 25 MG, QD
     Route: 030
     Dates: start: 20140629, end: 20140629
  4. HUMAN INSULIN [Concomitant]
     Active Substance: INSULIN HUMAN
     Indication: DIABETES MELLITUS
     Dosage: 4 U, QD
     Route: 058
     Dates: start: 20140520, end: 20140520
  5. HUMAN INSULIN [Concomitant]
     Active Substance: INSULIN HUMAN
     Dosage: 4 U, QD
     Route: 058
     Dates: start: 20140605, end: 20140605
  6. SALBUTAMOL SULFATE [Concomitant]
     Active Substance: ALBUTEROL SULFATE
     Indication: PRODUCT USED FOR UNKNOWN INDICATION
     Dosage: (1 PACK 1/DAY DRN)
     Route: 065
     Dates: start: 20140523, end: 20140525
  7. DIAZEPAM. [Concomitant]
     Active Substance: DIAZEPAM
     Indication: PRODUCT USED FOR UNKNOWN INDICATION
     Dosage: 5 MG, QD
     Route: 042
     Dates: start: 20140524, end: 20140524
  8. CHLORPHENAMIMINE MALEATE [Concomitant]
     Indication: PRODUCT USED FOR UNKNOWN INDICATION
     Dosage: 4 MG, BID
     Route: 042
     Dates: start: 20140523, end: 20140523
  9. INSULIN LISPRO [Concomitant]
     Active Substance: INSULIN LISPRO
     Dosage: 4 U, BID
     Route: 058
     Dates: start: 20140711, end: 20140712
  10. PSEUDOEPHEDRINE HYDROCHLORIDE. [Concomitant]
     Active Substance: PSEUDOEPHEDRINE HYDROCHLORIDE
     Indication: PRODUCT USED FOR UNKNOWN INDICATION
     Dosage: 60 MG, TID
     Route: 048
     Dates: start: 20140526, end: 20140530
  11. DULCOLAX NOS [Concomitant]
     Active Substance: BISACODYL OR DOCUSATE SODIUM
     Dosage: 1 DF, QD  (TABLET)
     Route: 054
     Dates: start: 20140630, end: 20140630
  12. GINKO BILOBA [Concomitant]
     Active Substance: GINKGO
     Indication: HYPOACUSIS
     Dosage: 80 MG, BID
     Route: 048
     Dates: start: 20140621, end: 20140622
  13. CARBOXYMETHYLCELLULOSE SODIUM. [Concomitant]
     Active Substance: CARBOXYMETHYLCELLULOSE SODIUM
     Indication: DRY EYE
     Dosage: 2 MG, QD
     Route: 061
     Dates: start: 20140620, end: 20140625
  14. CLOPIDOGREL [Concomitant]
     Active Substance: CLOPIDOGREL BISULFATE
     Indication: PROPHYLAXIS
     Dosage: 300 MG, QD
     Route: 048
     Dates: start: 20140625, end: 20140625
  15. PHENYLEPHRINE [Concomitant]
     Active Substance: PHENYLEPHRINE HYDROCHLORIDE
     Indication: BLOOD PRESSURE ABNORMAL
     Dosage: 10 MG, BID
     Route: 042
     Dates: start: 20140627, end: 20140627
  16. MASI [Concomitant]
     Dosage: 16 G, QD
     Route: 042
     Dates: start: 20140629, end: 20140630
  17. CEFAZOLIN [Concomitant]
     Active Substance: CEFAZOLIN
     Indication: INFECTION
     Dosage: 1 G, QD
     Route: 042
     Dates: start: 20140728, end: 20140728
  18. LEVETIRACETAM. [Concomitant]
     Active Substance: LEVETIRACETAM
     Dosage: 500 MG, QD
     Route: 048
     Dates: start: 20140605
  19. HUMAN INSULIN [Concomitant]
     Active Substance: INSULIN HUMAN
     Dosage: 4 U, BID
     Route: 058
     Dates: start: 20140608, end: 20140608
  20. FAMOTIDINE. [Concomitant]
     Active Substance: FAMOTIDINE
     Indication: PROPHYLAXIS
     Dosage: 20 MG, BID
     Route: 042
     Dates: start: 20140516, end: 20140520
  21. FAMOTIDINE. [Concomitant]
     Active Substance: FAMOTIDINE
     Dosage: 20 MG, BID
     Route: 042
     Dates: start: 20140728, end: 20140728
  22. CEFTRIAXONE. [Concomitant]
     Active Substance: CEFTRIAXONE
     Indication: INFECTION PROPHYLAXIS
     Dosage: 2 G, QD
     Route: 042
     Dates: start: 20140516, end: 20140531
  23. NIMODIPINE. [Concomitant]
     Active Substance: NIMODIPINE
     Indication: PRODUCT USED FOR UNKNOWN INDICATION
     Dosage: 50 MG, QD
     Route: 042
     Dates: start: 20140516, end: 20140522
  24. HYDROCORTISONE SODIUM SUCCINATE [Concomitant]
     Active Substance: HYDROCORTISONE SODIUM SUCCINATE
     Indication: PROPHYLAXIS
     Dosage: 50 MG, QD
     Route: 042
     Dates: start: 20140517, end: 20140525
  25. NOREPINEPHRINE BITARTRATE. [Concomitant]
     Active Substance: NOREPINEPHRINE BITARTRATE
     Dosage: 8 MG QD
     Route: 042
     Dates: start: 20140518, end: 20140518
  26. ALBUMINE [Concomitant]
     Indication: PRODUCT USED FOR UNKNOWN INDICATION
     Dosage: 100 ML, QD
     Route: 042
     Dates: start: 20140517, end: 20140517
  27. BISACODYL. [Concomitant]
     Active Substance: BISACODYL
     Indication: PRODUCT USED FOR UNKNOWN INDICATION
     Dosage: 1 DF, QD (1 T/DAY SUPPO)
     Route: 065
     Dates: start: 20140517, end: 20140517
  28. CHLORPHENAMIMINE MALEATE [Concomitant]
     Dosage: 2 MG, QD
     Route: 042
     Dates: start: 20140525, end: 20140525
  29. INSULIN LISPRO [Concomitant]
     Active Substance: INSULIN LISPRO
     Dosage: 10 U, QD
     Route: 058
     Dates: start: 20140524, end: 20140524
  30. INSULIN LISPRO [Concomitant]
     Active Substance: INSULIN LISPRO
     Dosage: 6 U, QD
     Route: 058
     Dates: start: 20140529, end: 20140531
  31. LEVOTHYROXINE. [Concomitant]
     Active Substance: LEVOTHYROXINE
     Indication: BLOOD THYROID STIMULATING HORMONE
     Dosage: 0.01 MG, QD
     Route: 048
     Dates: start: 20140611
  32. TRAMADOL. [Concomitant]
     Active Substance: TRAMADOL
     Dosage: 50 MG, QD
     Route: 042
     Dates: start: 20140620, end: 20140620
  33. MANNITOL. [Concomitant]
     Active Substance: MANNITOL
     Indication: PAPILLOEDEMA
     Dosage: 100 MG, QW
     Route: 042
     Dates: start: 20140625, end: 20140630
  34. MANNITOL. [Concomitant]
     Active Substance: MANNITOL
     Dosage: 100 ML, TID
     Route: 042
     Dates: start: 20140701, end: 20140701
  35. VOLULYTE [Concomitant]
     Indication: PROPHYLAXIS
     Dosage: 1000 MG, QD
     Route: 042
     Dates: start: 20140625, end: 20140716
  36. HIDROCORTISONA KLONAL//HYDROCORTISONE SODIUM SUCCINATE [Concomitant]
     Indication: PROPHYLAXIS
     Dosage: 100 MG, QD
     Route: 042
     Dates: start: 20140625, end: 20140625
  37. DEXAMETHASONE. [Concomitant]
     Active Substance: DEXAMETHASONE
     Indication: BLOOD CORTICOTROPHIN ABNORMAL
     Dosage: 5 MG, QD
     Route: 042
     Dates: start: 20140626, end: 20140627
  38. CIMETIDINE [Concomitant]
     Active Substance: CIMETIDINE
     Dosage: 200 MG, BID
     Route: 042
     Dates: start: 20140628, end: 20140629
  39. PHENYLEPHRINE [Concomitant]
     Active Substance: PHENYLEPHRINE HYDROCHLORIDE
     Dosage: 50 MG, QD
     Route: 042
     Dates: start: 20140628, end: 20140630
  40. LASIX [Concomitant]
     Active Substance: FUROSEMIDE
     Indication: URINE OUTPUT
     Dosage: 5 MG, QD
     Route: 042
     Dates: start: 20140718, end: 20140718
  41. METOCLOPRAMIDE HYDROCHLORIDE. [Concomitant]
     Active Substance: METOCLOPRAMIDE HYDROCHLORIDE
     Indication: NAUSEA
     Dosage: 10 MG, TID
     Route: 042
     Dates: start: 20140729, end: 20140729
  42. VILDAGLIPTIN [Concomitant]
     Active Substance: VILDAGLIPTIN
     Dosage: 50 MG, BID
     Route: 048
     Dates: start: 20140611
  43. PITAVASTATIN. [Concomitant]
     Active Substance: PITAVASTATIN CALCIUM
     Dosage: 2 MG, QD
     Route: 048
     Dates: start: 20140517, end: 20140627
  44. LEVETIRACETAM. [Concomitant]
     Active Substance: LEVETIRACETAM
     Dosage: 250 MG, BID
     Route: 048
     Dates: start: 20140525, end: 20140605
  45. HUMAN INSULIN [Concomitant]
     Active Substance: INSULIN HUMAN
     Dosage: 4 U, QD
     Route: 058
     Dates: start: 20140706, end: 20140707
  46. PETHIDINE HCL [Concomitant]
     Indication: PAIN
     Dosage: 25 MG, QD
     Route: 030
     Dates: start: 20140516, end: 20140516
  47. FENTANYL. [Concomitant]
     Active Substance: FENTANYL
     Indication: PAIN
     Dosage: 2.1 MG, QD
     Route: 042
     Dates: start: 20140516, end: 20140516
  48. MAGNESIUM OXIDE. [Concomitant]
     Active Substance: MAGNESIUM OXIDE
     Indication: PRODUCT USED FOR UNKNOWN INDICATION
     Dosage: 500 MG, TID
     Route: 048
     Dates: start: 20140518
  49. PROPACETAMOL [Concomitant]
     Active Substance: PROPACETAMOL
     Dosage: 1000 MG, QD
     Route: 042
     Dates: start: 20140624, end: 20140625
  50. COUGH SYRUP [Concomitant]
     Active Substance: DEXTROMETHORPHAN HYDROBROMIDE\GUAIFENESIN
     Indication: PRODUCT USED FOR UNKNOWN INDICATION
     Dosage: 20 ML, TID
     Route: 048
     Dates: start: 20140521, end: 20140530
  51. CALCIUM CHLORIDE. [Concomitant]
     Active Substance: CALCIUM CHLORIDE
     Indication: PRODUCT USED FOR UNKNOWN INDICATION
     Dosage: 1200 MG, QD
     Route: 042
     Dates: start: 20140524, end: 20140524
  52. INSULIN LISPRO [Concomitant]
     Active Substance: INSULIN LISPRO
     Dosage: 6 U, BID
     Route: 058
     Dates: start: 20140522, end: 20140523
  53. INSULIN LISPRO [Concomitant]
     Active Substance: INSULIN LISPRO
     Dosage: 8 U, QD
     Route: 058
     Dates: start: 20140526, end: 20140526
  54. INSULIN LISPRO [Concomitant]
     Active Substance: INSULIN LISPRO
     Dosage: 4 U, QD
     Route: 058
     Dates: start: 20140709, end: 20140709
  55. INSULIN LISPRO [Concomitant]
     Active Substance: INSULIN LISPRO
     Dosage: 6 U, QD
     Route: 058
     Dates: start: 20140710, end: 20140710
  56. DULCOLAX NOS [Concomitant]
     Active Substance: BISACODYL OR DOCUSATE SODIUM
     Dosage: 1 DF, QD  (TABLET)
     Route: 048
     Dates: start: 20140624, end: 20140624
  57. SMOFKABIVEN [Concomitant]
     Active Substance: AMINO ACIDS\DEXTROSE\ELECTROLYTES NOS\SOYBEAN OIL
     Dosage: 1448 ML, QD
     Route: 042
     Dates: start: 20140729, end: 20140729
  58. NEFOPAM [Concomitant]
     Active Substance: NEFOPAM
     Indication: PAIN
     Dosage: 100 MG, QD
     Route: 042
     Dates: start: 20140620, end: 20140620
  59. MANNITOL. [Concomitant]
     Active Substance: MANNITOL
     Dosage: 100 MG, QID
     Route: 042
     Dates: start: 20140630, end: 20140630
  60. ASPIRINE PROTECT [Concomitant]
     Active Substance: ASPIRIN
     Dosage: 100 MG, QD
     Route: 048
     Dates: start: 20140626
  61. ERDOSTEINE [Concomitant]
     Active Substance: ERDOSTEINE
     Indication: PRODUCTIVE COUGH
     Dosage: 300 MG, TID
     Route: 048
     Dates: start: 20140717
  62. GODEX [Concomitant]
     Indication: LIVER FUNCTION TEST ABNORMAL
     Dosage: 2 DF, (CAPSULE) BID
     Route: 048
     Dates: start: 20140717
  63. MYPOL [Concomitant]
     Indication: PROPHYLAXIS
     Dosage: 1 DF, (CAPSULE) TID
     Route: 048
     Dates: start: 20140729
  64. METFORMIN HCL [Concomitant]
     Active Substance: METFORMIN HYDROCHLORIDE
     Indication: DIABETES MELLITUS
     Dosage: 500 MG, UNK
     Dates: start: 20140428, end: 20140503
  65. LEVETIRACETAM. [Concomitant]
     Active Substance: LEVETIRACETAM
     Dosage: 25 MG, QD
     Route: 030
     Dates: start: 20140702, end: 20140702
  66. HUMAN INSULIN [Concomitant]
     Active Substance: INSULIN HUMAN
     Dosage: 4 U, QD
     Route: 058
     Dates: start: 20140526, end: 20140526
  67. HUMAN INSULIN [Concomitant]
     Active Substance: INSULIN HUMAN
     Dosage: 4 U, TID
     Route: 058
     Dates: start: 20140527, end: 20140527
  68. HUMAN INSULIN [Concomitant]
     Active Substance: INSULIN HUMAN
     Dosage: 4 U, BID
     Route: 058
     Dates: start: 20140528, end: 20140529
  69. HUMAN INSULIN [Concomitant]
     Active Substance: INSULIN HUMAN
     Dosage: 4 U, QD
     Route: 058
     Dates: start: 20140607, end: 20140607
  70. HUMAN INSULIN [Concomitant]
     Active Substance: INSULIN HUMAN
     Dosage: 4 U, TID
     Route: 058
     Dates: start: 20140705, end: 20140705
  71. CEFTRIAXONE. [Concomitant]
     Active Substance: CEFTRIAXONE
     Dosage: 1 DF (2), BID
     Route: 042
     Dates: start: 20140518, end: 20140518
  72. FENTANYL. [Concomitant]
     Active Substance: FENTANYL
     Dosage: 2.1 MG, QD
     Route: 042
     Dates: start: 20140729, end: 20140729
  73. NOREPINEPHRINE BITARTRATE. [Concomitant]
     Active Substance: NOREPINEPHRINE BITARTRATE
     Indication: PRODUCT USED FOR UNKNOWN INDICATION
     Dosage: 32 MG, QD
     Route: 042
     Dates: start: 20140517, end: 20140517
  74. PROPACETAMOL [Concomitant]
     Active Substance: PROPACETAMOL
     Dosage: 1000 MG, QD
     Route: 042
     Dates: start: 20140619, end: 20140622
  75. PROPACETAMOL [Concomitant]
     Active Substance: PROPACETAMOL
     Dosage: 1000 MG, QD
     Route: 042
     Dates: start: 20140722, end: 20140722
  76. PROPACETAMOL [Concomitant]
     Active Substance: PROPACETAMOL
     Dosage: 1000 MG, QD
     Route: 042
     Dates: start: 20140725, end: 20140725
  77. PROPACETAMOL [Concomitant]
     Active Substance: PROPACETAMOL
     Dosage: 1000 MG, QD
     Route: 042
     Dates: start: 20140731
  78. TRAMADOL HCL [Concomitant]
     Active Substance: TRAMADOL HYDROCHLORIDE
     Indication: PYREXIA
     Dosage: 50 MG, QD
     Route: 030
     Dates: start: 20140521, end: 20140521
  79. CALCIUM CHLORIDE. [Concomitant]
     Active Substance: CALCIUM CHLORIDE
     Dosage: 600 ML, QD
     Route: 042
     Dates: start: 20140701, end: 20140701
  80. INSULIN LISPRO [Concomitant]
     Active Substance: INSULIN LISPRO
     Dosage: 6 U, QD
     Route: 058
     Dates: start: 20140606, end: 20140607
  81. INSULIN LISPRO [Concomitant]
     Active Substance: INSULIN LISPRO
     Dosage: 4 U, QD
     Route: 058
     Dates: start: 20140721, end: 20140722
  82. TRAMADOL. [Concomitant]
     Active Substance: TRAMADOL
     Dosage: 50 MG, QD
     Route: 030
     Dates: start: 20140719, end: 20140719
  83. VOLULYTE [Concomitant]
     Dosage: 500 ML, QD
     Route: 042
     Dates: start: 20140701, end: 20140701
  84. CIMETIDINE [Concomitant]
     Active Substance: CIMETIDINE
     Dosage: 200 MG, QD
     Route: 042
     Dates: start: 20140630, end: 20140701
  85. LINEZOLID. [Concomitant]
     Active Substance: LINEZOLID
     Indication: INFECTION PROPHYLAXIS
     Dosage: 600 MG, BID
     Route: 042
     Dates: start: 20140717, end: 20140730
  86. ROSUVASTATIN CALCIUM. [Concomitant]
     Active Substance: ROSUVASTATIN CALCIUM
     Indication: HYPERCHOLESTEROLAEMIA
     Dosage: 20 MG, QD
     Route: 048
     Dates: start: 20140717
  87. HUMAN INSULIN [Concomitant]
     Active Substance: INSULIN HUMAN
     Dosage: 4 U, QD
     Route: 058
     Dates: start: 20140531, end: 20140531
  88. HUMAN INSULIN [Concomitant]
     Active Substance: INSULIN HUMAN
     Dosage: 4 U, BID
     Route: 058
     Dates: start: 20140708, end: 20140708
  89. MAGNESIUM OXIDE. [Concomitant]
     Active Substance: MAGNESIUM OXIDE
     Dosage: 500 MG, TID
     Route: 048
     Dates: start: 20140730
  90. ALBUMINE [Concomitant]
     Dosage: 100 MG, QD
     Route: 042
     Dates: start: 20140701, end: 20140701
  91. VASOPRESSIN. [Concomitant]
     Active Substance: VASOPRESSIN
     Dosage: 2 U, QD
     Route: 058
     Dates: start: 20140521, end: 20140527
  92. VASOPRESSIN. [Concomitant]
     Active Substance: VASOPRESSIN
     Dosage: 2 U, QD
     Route: 042
     Dates: start: 20140702, end: 20140702
  93. INSULIN LISPRO [Concomitant]
     Active Substance: INSULIN LISPRO
     Dosage: 6 U, BID
     Route: 058
     Dates: start: 20140706, end: 20140707
  94. INSULIN LISPRO [Concomitant]
     Active Substance: INSULIN LISPRO
     Dosage: 6 U, QD
     Route: 058
     Dates: start: 20140713, end: 20140713
  95. INSULIN LISPRO [Concomitant]
     Active Substance: INSULIN LISPRO
     Dosage: 4 U, QD
     Route: 058
     Dates: start: 20140719, end: 20140719
  96. CODEIN [Concomitant]
     Active Substance: CODEINE
     Dosage: 20 MG, BID
     Route: 048
     Dates: start: 20140530
  97. LEVOTHYROXINE. [Concomitant]
     Active Substance: LEVOTHYROXINE
     Indication: CUSHING^S SYNDROME
     Dosage: 0.1 MG, QD
     Route: 048
     Dates: start: 20140523
  98. PERIOLIMEL [Concomitant]
     Indication: NUTRITIONAL SUPPLEMENTATION
     Dosage: 1 DF, (1.5) QD
     Route: 042
     Dates: start: 20140618, end: 20140618
  99. URSA [Concomitant]
     Indication: ASPARTATE AMINOTRANSFERASE INCREASED
     Dosage: 100 MG, TID
     Route: 048
     Dates: start: 20140717
  100. BROMHEXIN [Concomitant]
     Active Substance: BROMHEXINE
     Indication: PRODUCTIVE COUGH
     Dosage: 8 MG, TID
     Route: 048
     Dates: start: 20140704
  101. PITAVASTATIN. [Concomitant]
     Active Substance: PITAVASTATIN CALCIUM
     Indication: HYPERCHOLESTEROLAEMIA
     Dosage: 2 MG, (SID)
     Route: 048
     Dates: start: 20140507, end: 20140515
  102. LEVETIRACETAM. [Concomitant]
     Active Substance: LEVETIRACETAM
     Indication: PROPHYLAXIS
     Dosage: 500 MG, BID
     Route: 048
     Dates: start: 20140516, end: 20140518
  103. LEVETIRACETAM. [Concomitant]
     Active Substance: LEVETIRACETAM
     Dosage: 500 MG, BID
     Route: 048
     Dates: start: 20140611
  104. HUMAN INSULIN [Concomitant]
     Active Substance: INSULIN HUMAN
     Dosage: 4 U, QD
     Route: 058
     Dates: start: 20140521, end: 20140522
  105. HUMAN INSULIN [Concomitant]
     Active Substance: INSULIN HUMAN
     Dosage: 4 U, QD
     Route: 058
     Dates: start: 20140524, end: 20140524
  106. HUMAN INSULIN [Concomitant]
     Active Substance: INSULIN HUMAN
     Dosage: 4 U, QD
     Route: 058
     Dates: start: 20140610, end: 20140611
  107. FAMOTIDINE. [Concomitant]
     Active Substance: FAMOTIDINE
     Dosage: 10 MG, BID
     Route: 048
     Dates: start: 20140729
  108. CEFTRIAXONE. [Concomitant]
     Active Substance: CEFTRIAXONE
     Dosage: 1 DF (2), BID
     Route: 042
     Dates: start: 20140619, end: 20140702
  109. PETHIDINE HCL [Concomitant]
     Dosage: 25 MG, QD
     Route: 042
     Dates: start: 20140618, end: 20140618
  110. ONDANSETRON HYDROCHLORIDE DIHYDRATE [Concomitant]
     Active Substance: ONDANSETRON HYDROCHLORIDE
     Indication: PRODUCT USED FOR UNKNOWN INDICATION
     Dosage: 4 M, QD
     Route: 042
     Dates: start: 20140516, end: 20140516
  111. HYDROCORTISONE SODIUM SUCCINATE [Concomitant]
     Active Substance: HYDROCORTISONE SODIUM SUCCINATE
     Dosage: 100 MG, QD
     Route: 042
     Dates: start: 20140518, end: 20140519
  112. DEXAMETHASONE SODIUM PHOSPHATE. [Concomitant]
     Active Substance: DEXAMETHASONE SODIUM PHOSPHATE
     Dosage: 5 MG, BID
     Route: 042
     Dates: start: 20140523, end: 20140523
  113. DEXAMETHASONE SODIUM PHOSPHATE. [Concomitant]
     Active Substance: DEXAMETHASONE SODIUM PHOSPHATE
     Dosage: 5 MG, QD
     Route: 042
     Dates: start: 20140626, end: 20140626
  114. PROPACETAMOL [Concomitant]
     Active Substance: PROPACETAMOL
     Dosage: 1000 MG, QD
     Route: 042
     Dates: start: 20140727, end: 20140728
  115. PANTOPRAZOLE SODIUM. [Concomitant]
     Active Substance: PANTOPRAZOLE SODIUM
     Indication: PRODUCT USED FOR UNKNOWN INDICATION
     Dosage: 40 MG, QD
     Route: 042
     Dates: start: 20140517, end: 20140519
  116. VASOPRESSIN. [Concomitant]
     Active Substance: VASOPRESSIN
     Indication: URINE OUTPUT
     Dosage: 1 U, QD
     Route: 058
     Dates: start: 20140521, end: 20140521
  117. VASOPRESSIN. [Concomitant]
     Active Substance: VASOPRESSIN
     Dosage: 2 U, QD
     Route: 042
     Dates: start: 20140713, end: 20140713
  118. INSULIN LISPRO [Concomitant]
     Active Substance: INSULIN LISPRO
     Indication: DIABETES MELLITUS
     Dosage: 6 U, BID
     Route: 058
     Dates: start: 20140520, end: 20140521
  119. INSULIN LISPRO [Concomitant]
     Active Substance: INSULIN LISPRO
     Dosage: 4 U, BID
     Route: 058
     Dates: start: 20140718, end: 20140718
  120. DULCOLAX NOS [Concomitant]
     Active Substance: BISACODYL OR DOCUSATE SODIUM
     Indication: CONSTIPATION
     Dosage: 1 DF, BID (1 T 2/ DAY)
     Route: 048
     Dates: start: 20140528, end: 20140528
  121. ZIPEPROL [Concomitant]
     Active Substance: ZIPEPROL
     Dosage: 10 MG, TID
     Route: 048
     Dates: start: 20140530
  122. GUAIFENESIN. [Concomitant]
     Active Substance: GUAIFENESIN
     Indication: COUGH
     Dosage: 200 MG, TID
     Route: 048
     Dates: start: 20140530, end: 20140701
  123. SMOFKABIVEN [Concomitant]
     Active Substance: AMINO ACIDS\DEXTROSE\ELECTROLYTES NOS\SOYBEAN OIL
     Dosage: 1448 MG, QD
     Route: 042
     Dates: start: 20140704, end: 20140705
  124. CIPROFLOXACIN HCL [Concomitant]
     Active Substance: CIPROFLOXACIN HYDROCHLORIDE
     Indication: INFECTION PROPHYLAXIS
     Dosage: 250 MG, BID
     Route: 048
     Dates: start: 20140611
  125. TRAMADOL. [Concomitant]
     Active Substance: TRAMADOL
     Indication: PAIN
     Dosage: 50 MG, QD
     Route: 042
     Dates: start: 20140618, end: 20140618
  126. ASPIRINE PROTECT [Concomitant]
     Active Substance: ASPIRIN
     Indication: PROPHYLAXIS
     Dosage: 100 MG, QD
     Route: 048
     Dates: start: 20140625, end: 20140625
  127. CLOPIDOGREL [Concomitant]
     Active Substance: CLOPIDOGREL BISULFATE
     Dosage: 75 MG, QD
     Route: 048
     Dates: start: 20140626
  128. CIMETIDINE [Concomitant]
     Active Substance: CIMETIDINE
     Indication: PROPHYLAXIS
     Dosage: 200 MG, TID
     Route: 048
     Dates: start: 20140626, end: 20140627
  129. ADELAVIN [Concomitant]
     Active Substance: FLAVIN ADENINE DINUCLEOTIDE
     Indication: LIVER FUNCTION TEST ABNORMAL
     Dosage: 2 ML, QD
     Route: 042
     Dates: start: 20140717, end: 20140717
  130. TEICOPLANIN [Concomitant]
     Active Substance: TEICOPLANIN
     Indication: INFECTION PROPHYLAXIS
     Dosage: 400 MG, QD
     Route: 042
     Dates: start: 20140718, end: 20140718
  131. VILDAGLIPTIN [Concomitant]
     Active Substance: VILDAGLIPTIN
     Indication: DIABETES MELLITUS
     Dosage: 50 MG, BID
     Route: 048
     Dates: start: 20140507, end: 20140516
  132. LEVETIRACETAM. [Concomitant]
     Active Substance: LEVETIRACETAM
     Dosage: 500 MG, QD
     Route: 042
     Dates: start: 20140524, end: 20140524
  133. HUMAN INSULIN [Concomitant]
     Active Substance: INSULIN HUMAN
     Dosage: 4 U, BID
     Route: 058
     Dates: start: 20140601, end: 20140602
  134. HUMAN INSULIN [Concomitant]
     Active Substance: INSULIN HUMAN
     Dosage: 4 U, BID
     Route: 058
     Dates: start: 20140704, end: 20140704
  135. KETOROLAC TROMETHAMINE. [Concomitant]
     Active Substance: KETOROLAC TROMETHAMINE
     Indication: PRODUCT USED FOR UNKNOWN INDICATION
     Dosage: 30 MG, TID
     Route: 042
     Dates: start: 20140516, end: 20140517
  136. ACETYLCYSTEINE. [Concomitant]
     Active Substance: ACETYLCYSTEINE
     Indication: PRODUCT USED FOR UNKNOWN INDICATION
     Dosage: 600 MG, TID
     Route: 042
     Dates: start: 20140516, end: 20140517
  137. HYDROCORTISONE SODIUM SUCCINATE [Concomitant]
     Active Substance: HYDROCORTISONE SODIUM SUCCINATE
     Dosage: 100 MG, QD
     Route: 042
     Dates: start: 20140625, end: 20140625
  138. MEFENAMIC ACID. [Concomitant]
     Active Substance: MEFENAMIC ACID
     Indication: PAIN
     Dosage: 250 MG, TID
     Route: 048
     Dates: start: 20140518
  139. MEFENAMIC ACID. [Concomitant]
     Active Substance: MEFENAMIC ACID
     Dosage: 250 MG, QD
     Route: 048
     Dates: start: 20140622, end: 20140622
  140. RANIONE [Concomitant]
     Indication: DYSPEPSIA
     Dosage: 1 DF (TABLET), BID
     Route: 048
     Dates: start: 20140518
  141. DEXAMETHASONE SODIUM PHOSPHATE. [Concomitant]
     Active Substance: DEXAMETHASONE SODIUM PHOSPHATE
     Indication: BLOOD CORTICOTROPHIN
     Dosage: 5 MG, QD
     Route: 042
     Dates: start: 20140517, end: 20140517
  142. PROPACETAMOL [Concomitant]
     Active Substance: PROPACETAMOL
     Indication: PYREXIA
     Dosage: 1000 ML, QD
     Route: 042
     Dates: start: 20140517, end: 20140523
  143. PROPACETAMOL [Concomitant]
     Active Substance: PROPACETAMOL
     Dosage: 1000 MG, QD
     Route: 042
     Dates: start: 20140701, end: 20140707
  144. PROPACETAMOL [Concomitant]
     Active Substance: PROPACETAMOL
     Dosage: 1000 MG, QD
     Route: 042
     Dates: start: 20140722, end: 20140722
  145. POTASSIUM CHLORIDE. [Concomitant]
     Active Substance: POTASSIUM CHLORIDE
     Indication: HYPOKALAEMIA
     Dosage: 600 MG, TID
     Route: 048
     Dates: start: 20140523
  146. INSULIN LISPRO [Concomitant]
     Active Substance: INSULIN LISPRO
     Dosage: 6 U, QD
     Route: 058
     Dates: start: 20140626, end: 20140626
  147. INSULIN LISPRO [Concomitant]
     Active Substance: INSULIN LISPRO
     Dosage: 6 U, QD
     Route: 058
     Dates: start: 20140704, end: 20140704
  148. INSULIN LISPRO [Concomitant]
     Active Substance: INSULIN LISPRO
     Dosage: 4 U, QD
     Route: 058
     Dates: start: 20140716, end: 20140716
  149. RHINATHIOL [CARBOCYSTEINE] [Concomitant]
     Active Substance: CARBOCYSTEINE
     Indication: PRODUCT USED FOR UNKNOWN INDICATION
     Dosage: 500 MG, TID
     Route: 048
     Dates: start: 20140526, end: 20140530
  150. CODEIN [Concomitant]
     Active Substance: CODEINE
     Indication: PRODUCT USED FOR UNKNOWN INDICATION
     Dosage: 10 MG, QD
     Route: 048
     Dates: start: 20140527, end: 20140530
  151. SMOFKABIVEN [Concomitant]
     Active Substance: AMINO ACIDS\DEXTROSE\ELECTROLYTES NOS\SOYBEAN OIL
     Dosage: 1448 MG, QD
     Route: 042
     Dates: start: 20140626, end: 20140626
  152. LACTULON//LACTULOSE [Concomitant]
     Dosage: 15 ML, TID
     Route: 048
     Dates: start: 20140720
  153. LACTULON//LACTULOSE [Concomitant]
     Dosage: 15 ML, QD
     Route: 048
     Dates: start: 20140725
  154. ULTRACET [Concomitant]
     Active Substance: ACETAMINOPHEN\TRAMADOL HYDROCHLORIDE
     Indication: PAIN
     Dosage: 1 DF, BID (TABLET)
     Route: 048
     Dates: start: 20140620, end: 20140622
  155. DEXAMETHASONE. [Concomitant]
     Active Substance: DEXAMETHASONE
     Dosage: 5 MG, BID
     Route: 042
     Dates: start: 20140630, end: 20140701
  156. MASI [Concomitant]
     Indication: SUPPLEMENTATION THERAPY
     Dosage: 4 G, QD
     Route: 042
     Dates: start: 20140629, end: 20140629
  157. MUCOMYST [Concomitant]
     Active Substance: ACETYLCYSTEINE
     Indication: PRODUCTIVE COUGH
     Dosage: 800 MG,
     Route: 065
     Dates: start: 20140720
  158. NEFOPAM HYDROCHLORIDE [Concomitant]
     Active Substance: NEFOPAM HYDROCHLORIDE
     Indication: PAIN
     Dosage: 20 MG, TID
     Route: 042
     Dates: start: 20140729, end: 20140729
  159. VILDAGLIPTIN [Concomitant]
     Active Substance: VILDAGLIPTIN
     Dosage: 50 MG, BID
     Route: 048
     Dates: start: 20140517
  160. VANCOMYCIN HCL [Concomitant]
     Active Substance: VANCOMYCIN HYDROCHLORIDE
     Indication: PRODUCT USED FOR UNKNOWN INDICATION
     Dosage: 1 G, BID
     Route: 042
     Dates: start: 20140522, end: 20140523
  161. POTASSIUM PHOSPHATE MONOBASIC [Concomitant]
     Active Substance: POTASSIUM PHOSPHATE, MONOBASIC
     Indication: PRODUCT USED FOR UNKNOWN INDICATION
     Dosage: 20 ML, QD
     Route: 042
     Dates: start: 20140516, end: 20140516
  162. PETHIDINE HCL [Concomitant]
     Dosage: 50 MG, QD
     Route: 030
     Dates: start: 20140516, end: 20140516
  163. PROPACETAMOL [Concomitant]
     Active Substance: PROPACETAMOL
     Dosage: 1000 MG, QD
     Route: 042
     Dates: start: 20140720, end: 20140720
  164. TRAMADOL HCL [Concomitant]
     Active Substance: TRAMADOL HYDROCHLORIDE
     Dosage: 50 MG, QD
     Route: 030
     Dates: start: 20140719, end: 20140719
  165. BUDESONIDE. [Concomitant]
     Active Substance: BUDESONIDE
     Indication: PRODUCT USED FOR UNKNOWN INDICATION
     Dosage: (1 PACK 1/DAY DRN)
     Route: 065
     Dates: start: 20140523, end: 20140525
  166. INSULIN LISPRO [Concomitant]
     Active Substance: INSULIN LISPRO
     Dosage: 6 U, QD
     Route: 058
     Dates: start: 20140603, end: 20140603
  167. INSULIN LISPRO [Concomitant]
     Active Substance: INSULIN LISPRO
     Dosage: 6 U, QD
     Route: 058
     Dates: start: 20140702, end: 20140702
  168. INSULIN LISPRO [Concomitant]
     Active Substance: INSULIN LISPRO
     Dosage: 4 U, QD
     Route: 058
     Dates: start: 20140714, end: 20140715
  169. SMOFKABIVEN [Concomitant]
     Active Substance: AMINO ACIDS\DEXTROSE\ELECTROLYTES NOS\SOYBEAN OIL
     Indication: NUTRITIONAL SUPPLEMENTATION
     Dosage: 1448 MG, QD
     Route: 042
     Dates: start: 20140516, end: 20140519
  170. TRAMADOL. [Concomitant]
     Active Substance: TRAMADOL
     Dosage: 50 MG, QD
     Route: 042
     Dates: start: 20140622, end: 20140622
  171. PETHIDINE [Concomitant]
     Active Substance: MEPERIDINE
     Indication: PAIN
     Dosage: 25 MG, QD
     Route: 042
     Dates: start: 20140618, end: 20140618
  172. GINKO BILOBA [Concomitant]
     Active Substance: GINKGO
     Dosage: 80 MG, TID
     Route: 048
     Dates: start: 20140622
  173. LACTULON//LACTULOSE [Concomitant]
     Indication: CONSTIPATION
     Dosage: 15 ML, TID
     Route: 048
     Dates: start: 20140706
  174. DEXAMETHASONE. [Concomitant]
     Active Substance: DEXAMETHASONE
     Indication: URINE OUTPUT
     Dosage: 5 MG, BID
     Route: 042
     Dates: start: 20140628, end: 20140629

REACTIONS (3)
  - Meningitis [Recovered/Resolved with Sequelae]
  - Diabetes mellitus [Not Recovered/Not Resolved]
  - Cerebrospinal fluid leakage [Recovered/Resolved with Sequelae]

NARRATIVE: CASE EVENT DATE: 20140418
